FAERS Safety Report 25338282 (Version 1)
Quarter: 2025Q2

REPORT INFORMATION
  Report Type: Spontaneous
  Country: BE (occurrence: BE)
  Receive Date: 20250520
  Receipt Date: 20250520
  Transmission Date: 20250716
  Serious: Yes (Life-Threatening, Hospitalization, Other)
  Sender: MERCK SHARP & DOHME LLC
  Company Number: BE-009507513-2283002

PATIENT
  Age: 78 Year
  Sex: Male
  Weight: 100 kg

DRUGS (13)
  1. PEMBROLIZUMAB [Suspect]
     Active Substance: PEMBROLIZUMAB
     Indication: Malignant melanoma stage IV
     Route: 042
     Dates: start: 20240411, end: 20240411
  2. PEMBROLIZUMAB [Suspect]
     Active Substance: PEMBROLIZUMAB
     Indication: Malignant melanoma stage IV
     Route: 065
     Dates: start: 20160913, end: 20170731
  3. NEBIVOLOL [Concomitant]
     Active Substance: NEBIVOLOL
     Indication: Arrhythmia
     Route: 048
  4. DAPAGLIFLOZIN [Concomitant]
     Active Substance: DAPAGLIFLOZIN
     Indication: Diabetes mellitus
     Dosage: 10MG DAILY
     Route: 048
  5. SPIRONOLACTONE [Concomitant]
     Active Substance: SPIRONOLACTONE
     Indication: Cardiac failure
     Dosage: 12.5 MG DAILY
     Route: 048
  6. ENTRESTO [Concomitant]
     Active Substance: SACUBITRIL\VALSARTAN
     Indication: Cardiac failure
     Route: 048
  7. XARELTO [Concomitant]
     Active Substance: RIVAROXABAN
     Indication: Anticoagulant therapy
     Dosage: 15 MG 1DD
     Route: 048
  8. ALLOPURINOL [Concomitant]
     Active Substance: ALLOPURINOL
     Dosage: 300 MG 1DD
     Route: 048
  9. CORDARONE [Concomitant]
     Active Substance: AMIODARONE HYDROCHLORIDE
     Dosage: 200 MG 1DD
     Route: 048
  10. dutasteride tamsulosine [Concomitant]
     Indication: Benign prostatic hyperplasia
     Dosage: 0,5/0,4 MG, 1DD
     Route: 048
  11. DAPAGLIFLOZIN [Concomitant]
     Active Substance: DAPAGLIFLOZIN
     Dosage: 10 MG 1DD
     Route: 048
  12. PANTOPRAZOLE [Concomitant]
     Active Substance: PANTOPRAZOLE
     Dosage: 20 MG, 201DD
     Route: 048
  13. ZOLPIDEM [Concomitant]
     Active Substance: ZOLPIDEM TARTRATE
     Indication: Sleep disorder
     Dosage: 10 MG 1DD
     Route: 048

REACTIONS (15)
  - Myocarditis-myositis-myasthenia gravis overlap syndrome [Recovered/Resolved with Sequelae]
  - Acute kidney injury [Recovered/Resolved]
  - Therapy partial responder [Unknown]
  - Decubitus ulcer [Unknown]
  - Urinary tract infection pseudomonal [Recovering/Resolving]
  - Monoclonal B-cell lymphocytosis [Unknown]
  - Cardiac failure [Unknown]
  - Tertiary adrenal insufficiency [Unknown]
  - Syncope [Unknown]
  - Septic shock [Recovering/Resolving]
  - Intensive care unit acquired weakness [Unknown]
  - Cardiac dysfunction [Recovering/Resolving]
  - Delirium [Unknown]
  - Malignant neoplasm progression [Unknown]
  - Cerebrovascular accident [Recovered/Resolved]

NARRATIVE: CASE EVENT DATE: 20170401
